FAERS Safety Report 9964429 (Version 1)
Quarter: 2014Q1

REPORT INFORMATION
  Report Type: Report from Study
  Country: BR (occurrence: BR)
  Receive Date: 20140305
  Receipt Date: 20140305
  Transmission Date: 20141002
  Serious: Yes (Other)
  Sender: FDA-Public Use
  Company Number: PHHY2014BR024567

PATIENT
  Sex: Male
  Weight: 98 kg

DRUGS (3)
  1. DIOVAN [Suspect]
     Indication: HYPERTENSION
     Dosage: 1 DF, UNK (80 MG) IN THE MORNING
     Route: 048
     Dates: end: 201401
  2. DIOVAN [Suspect]
     Dosage: 1 DF, UNK(40 MG)
  3. CAPTOMED [Suspect]
     Indication: HYPOTENSION
     Dosage: 1 DF, UNK (25 MG) WHEN PATIENT EXPERIENCED BLOOD PRESSURE PEAK
     Route: 048

REACTIONS (9)
  - Fall [Recovered/Resolved]
  - Head injury [Recovered/Resolved]
  - Intervertebral disc disorder [Unknown]
  - Blood pressure fluctuation [Recovered/Resolved]
  - Joint injury [Recovered/Resolved]
  - Nervousness [Recovered/Resolved]
  - Limb discomfort [Unknown]
  - Neuropathy peripheral [Unknown]
  - Asthenia [Recovered/Resolved]
